FAERS Safety Report 9016119 (Version 2)
Quarter: 2013Q1

REPORT INFORMATION
  Report Type: Spontaneous
  Country: DE (occurrence: DE)
  Receive Date: 20130116
  Receipt Date: 20130219
  Transmission Date: 20140127
  Serious: Yes (Hospitalization)
  Sender: FDA-Public Use
  Company Number: DE-MERCK-1301DEU005885

PATIENT
  Age: 54 Year
  Sex: Male

DRUGS (6)
  1. VICTRELIS [Suspect]
     Indication: HEPATITIS C
     Dosage: 800 MG, TID
     Route: 048
     Dates: start: 201204, end: 201211
  2. VICTRELIS [Suspect]
     Dosage: UNK, UNK
     Dates: start: 201211, end: 201212
  3. VICTRELIS [Suspect]
     Dosage: UNK, UNK
     Dates: start: 201212, end: 201212
  4. PEGASYS [Suspect]
     Indication: HEPATITIS C
     Dosage: UNK
     Route: 058
     Dates: start: 20120315, end: 201212
  5. COPEGUS [Suspect]
     Indication: HEPATITIS C
     Dosage: UNK
     Route: 048
     Dates: start: 20120315, end: 201212
  6. TAVANIC [Concomitant]
     Dosage: 500 MG, UNK

REACTIONS (14)
  - Pancytopenia [Unknown]
  - Pneumonia fungal [Unknown]
  - Endocarditis staphylococcal [Unknown]
  - Lymphadenopathy mediastinal [Unknown]
  - Hepatic cirrhosis [Unknown]
  - Venous thrombosis [Unknown]
  - Oesophageal candidiasis [Unknown]
  - Gastrooesophageal reflux disease [Unknown]
  - Acute left ventricular failure [Unknown]
  - General physical health deterioration [Unknown]
  - Myalgia [Unknown]
  - Weight decreased [Unknown]
  - Malaise [Unknown]
  - Anaemia [Unknown]
